FAERS Safety Report 8533885-8 (Version None)
Quarter: 2012Q3

REPORT INFORMATION
  Report Type: 
  Country: None (occurrence: None)
  Receive Date: 20120724
  Receipt Date: 20120720
  Transmission Date: 20120928
  Serious: Yes (Hospitalization)
  Sender: FDA-Public Use
  Company Number: US-AMGEN-USASP2012045320

PATIENT
  Age: 68 Year
  Sex: Female

DRUGS (2)
  1. METHOTREXATE [Concomitant]
     Dosage: 2 MG, UNK
  2. ENBREL [Suspect]
     Indication: RHEUMATOID ARTHRITIS
     Dosage: 50 MG, 2 TIMES/WK
     Dates: start: 19980101, end: 20110409

REACTIONS (14)
  - ARTHRALGIA [None]
  - INJURY [None]
  - LOCALISED INFECTION [None]
  - OEDEMA PERIPHERAL [None]
  - SPINAL OPERATION [None]
  - HYPOAESTHESIA [None]
  - CONTUSION [None]
  - DRUG EFFECT DECREASED [None]
  - MUSCULOSKELETAL PAIN [None]
  - INFESTATION [None]
  - SPINAL COMPRESSION FRACTURE [None]
  - PAIN IN EXTREMITY [None]
  - JOINT SWELLING [None]
  - RHEUMATOID ARTHRITIS [None]
